FAERS Safety Report 8360706-9 (Version None)
Quarter: 2012Q2

REPORT INFORMATION
  Report Type: 
  Country: None (occurrence: None)
  Receive Date: 20120515
  Receipt Date: 20120507
  Transmission Date: 20120825
  Serious: Yes (Other)
  Sender: FDA-Public Use
  Company Number: JP-VERTEX PHARMACEUTICALS INC.-AE-2012-001975

PATIENT
  Sex: Male

DRUGS (11)
  1. NAPROXEN [Concomitant]
     Route: 048
     Dates: start: 20120120, end: 20120122
  2. PEG-INTRON [Concomitant]
     Indication: HEPATITIS C
     Route: 058
     Dates: start: 20120120, end: 20120126
  3. PEG-INTRON [Concomitant]
     Route: 058
     Dates: start: 20120127, end: 20120202
  4. REBETOL [Concomitant]
     Route: 048
     Dates: start: 20120203
  5. RABEPRAZOLE SODIUM [Concomitant]
     Route: 048
     Dates: start: 20120120
  6. REBETOL [Concomitant]
     Route: 048
     Dates: start: 20120217
  7. TELAVIC (TELAPREVIR) [Suspect]
     Indication: HEPATITIS C
     Route: 048
     Dates: start: 20120120, end: 20120412
  8. REBETOL [Concomitant]
     Route: 048
     Dates: start: 20120309
  9. PEG-INTRON [Concomitant]
     Route: 058
     Dates: start: 20120203
  10. REBETOL [Concomitant]
     Indication: HEPATITIS C
     Route: 048
     Dates: start: 20120120, end: 20120202
  11. CLARITIN [Concomitant]
     Route: 048
     Dates: start: 20120120, end: 20120122

REACTIONS (3)
  - NEUTROPENIA [None]
  - HYPERURICAEMIA [None]
  - ANAEMIA [None]
